FAERS Safety Report 11463963 (Version 1)
Quarter: 2015Q3

REPORT INFORMATION
  Report Type: Spontaneous
  Country: US (occurrence: US)
  Receive Date: 20150831
  Receipt Date: 20150831
  Transmission Date: 20151125
  Serious: No
  Sender: FDA-Public Use
  Company Number: US-ELI_LILLY_AND_COMPANY-US201105007749

PATIENT
  Age: 79 Year
  Sex: Female

DRUGS (2)
  1. FORTEO [Concomitant]
     Active Substance: TERIPARATIDE
  2. CYMBALTA [Suspect]
     Active Substance: DULOXETINE HYDROCHLORIDE
     Indication: DYSTONIA
     Dosage: 2X30MG,QD
     Dates: end: 2010

REACTIONS (2)
  - Vertigo [Not Recovered/Not Resolved]
  - Off label use [Recovered/Resolved]
